FAERS Safety Report 15558996 (Version 3)
Quarter: 2018Q4

REPORT INFORMATION
  Report Type: Spontaneous
  Country: US (occurrence: US)
  Receive Date: 20181029
  Receipt Date: 20181113
  Transmission Date: 20190205
  Serious: No
  Sender: FDA-Public Use
  Company Number: US-AMGEN INC.-USASP2018149342

PATIENT
  Age: 52 Year
  Sex: Female
  Weight: 52.8 kg

DRUGS (1)
  1. AIMOVIG [Suspect]
     Active Substance: ERENUMAB-AOOE
     Indication: MIGRAINE
     Dosage: 70 MG, QMO
     Route: 030
     Dates: start: 20180922

REACTIONS (6)
  - Accidental exposure to product [Unknown]
  - Injection site pain [Unknown]
  - Underdose [Unknown]
  - Incorrect route of product administration [Unknown]
  - Migraine [Recovered/Resolved]
  - Wrong technique in product usage process [Unknown]

NARRATIVE: CASE EVENT DATE: 201809
